FAERS Safety Report 9230678 (Version 1)
Quarter: 2013Q1

REPORT INFORMATION
  Report Type: Spontaneous
  Country: US (occurrence: None)
  Receive Date: 20121031
  Receipt Date: 20121031
  Transmission Date: 20140127
  Serious: No
  Sender: FDA-Public Use
  Company Number: PHEH2012US016707

PATIENT
  Age: 41 Year
  Sex: Male
  Weight: 95.2 kg

DRUGS (1)
  1. GILENYA (FTY) CAPSULE, 0.5MG [Suspect]
     Indication: MULTIPLE SCLEROSIS
     Route: 048
     Dates: start: 20120810, end: 20120822

REACTIONS (8)
  - Nystagmus [None]
  - Body temperature fluctuation [None]
  - Hyperhidrosis [None]
  - Nausea [None]
  - Abdominal pain upper [None]
  - Flatulence [None]
  - Fatigue [None]
  - Asthenia [None]
